FAERS Safety Report 10058007 (Version 1)
Quarter: 2014Q2

REPORT INFORMATION
  Report Type: Spontaneous
  Country: US (occurrence: None)
  Receive Date: 20140403
  Receipt Date: 20140403
  Transmission Date: 20141212
  Serious: Yes (Hospitalization)
  Sender: FDA-Public Use
  Company Number: None

PATIENT
  Age: 64 Year
  Sex: Male
  Weight: 92 kg

DRUGS (2)
  1. BORTEZOMIB [Suspect]
     Indication: PLASMA CELL MYELOMA
     Route: 042
     Dates: start: 20140103, end: 20140103
  2. ZOLEDRONIC ACID 4MG [Concomitant]

REACTIONS (3)
  - Hyperhidrosis [None]
  - Hypoglycaemia [None]
  - Hypophagia [None]
